FAERS Safety Report 9375326 (Version 1)
Quarter: 2013Q2

REPORT INFORMATION
  Report Type: Spontaneous
  Country: US (occurrence: US)
  Receive Date: 20130628
  Receipt Date: 20130628
  Transmission Date: 20140414
  Serious: Yes (Other)
  Sender: FDA-Public Use
  Company Number: US-009507513-1306USA011910

PATIENT
  Age: 62 Year
  Sex: Male

DRUGS (11)
  1. JANUVIA [Suspect]
     Indication: DIABETES MELLITUS
     Dosage: 100 MG, ONCE DAILY
     Route: 048
     Dates: start: 20120127
  2. METFORMIN [Concomitant]
  3. ZETIA [Concomitant]
  4. VALTREX [Concomitant]
  5. RAMIPRIL [Concomitant]
  6. VIAGRA [Concomitant]
  7. ASPIRIN [Concomitant]
  8. OMEGA-3 MARINE TRIGLYCERIDES [Concomitant]
  9. VITAMIN D (UNSPECIFIED) [Concomitant]
  10. ELOCON [Concomitant]
  11. LOTRISONE [Concomitant]

REACTIONS (1)
  - Pancreatitis acute [Recovering/Resolving]
